FAERS Safety Report 9331806 (Version 2)
Quarter: 2013Q4

REPORT INFORMATION
  Report Type: Spontaneous
  Country: JP (occurrence: JP)
  Receive Date: 20130605
  Receipt Date: 20131121
  Transmission Date: 20140711
  Serious: Yes (Other)
  Sender: FDA-Public Use
  Company Number: PHHY2013JP052254

PATIENT
  Sex: Male

DRUGS (8)
  1. APRESOLINE [Suspect]
     Dosage: 30 MG, UNK
     Route: 064
  2. CICLOSPORIN [Suspect]
     Dosage: MATERNAL DOSE:200 MG, PER DAY
  3. CICLOSPORIN [Suspect]
     Dosage: UNK UKN, UNK
  4. CICLOSPORIN [Suspect]
     Dosage: MATERNAL DOSE:200 MG, PER DAY
  5. PREDNISOLONE [Suspect]
     Dosage: MATERNAL DOSE:15 MG, EVERY OTHER DAY
  6. PREDNISOLONE [Suspect]
     Dosage: MATERNAL DOSE:20 MG, EVERY OTHER DAY
  7. PREDNISOLONE [Suspect]
     Dosage: MATERNAL DOSE:15 MG, EVERY OTHER DAY
  8. METHYLDOPA [Concomitant]
     Indication: BLOOD PRESSURE INADEQUATELY CONTROLLED
     Dosage: 750 MG DAILY (MATERNAL DOSE)
     Route: 064

REACTIONS (5)
  - Low birth weight baby [Unknown]
  - Apgar score low [Unknown]
  - Anti-muscle specific kinase antibody positive [Unknown]
  - Premature baby [Unknown]
  - Foetal exposure timing unspecified [Unknown]
